FAERS Safety Report 15030491 (Version 2)
Quarter: 2018Q3

REPORT INFORMATION
  Report Type: Spontaneous
  Country: US (occurrence: US)
  Receive Date: 20180619
  Receipt Date: 20180816
  Transmission Date: 20181010
  Serious: No
  Sender: FDA-Public Use
  Company Number: US-GALDERMA-US18005671

PATIENT
  Sex: Female

DRUGS (4)
  1. DIFFERIN GEL [Suspect]
     Active Substance: ADAPALENE
     Indication: ACNE
     Dosage: 0.1%
     Route: 061
     Dates: start: 20180315, end: 20180323
  2. VITAMIN C [Concomitant]
     Active Substance: ASCORBIC ACID
     Dates: start: 201701
  3. CALCIUM [Concomitant]
     Active Substance: CALCIUM
     Dates: start: 201701
  4. BIOTIN [Concomitant]
     Active Substance: BIOTIN
     Dates: start: 201701

REACTIONS (1)
  - Rash [Unknown]
